FAERS Safety Report 8044659-9 (Version None)
Quarter: 2012Q1

REPORT INFORMATION
  Report Type: 
  Country: None (occurrence: None)
  Receive Date: 20120113
  Receipt Date: 20120111
  Transmission Date: 20120608
  Serious: No
  Sender: FDA-Public Use
  Company Number: US-BAYER-2011-119034

PATIENT
  Age: 22 Year
  Sex: Male
  Weight: 95.238 kg

DRUGS (3)
  1. ANDROGEL [Concomitant]
     Dosage: ONE DAILY
  2. GADAVIST [Suspect]
     Indication: NUCLEAR MAGNETIC RESONANCE IMAGING BRAIN
     Dosage: 5 ML, ONCE
  3. BROMOCRIPTINE MESYLATE [Concomitant]
     Dosage: 2 TABS, TWICE WEEKLY

REACTIONS (1)
  - URTICARIA [None]
